FAERS Safety Report 18546977 (Version 1)
Quarter: 2020Q4

REPORT INFORMATION
  Report Type: Spontaneous
  Country: US (occurrence: US)
  Receive Date: 20201125
  Receipt Date: 20201125
  Transmission Date: 20210114
  Serious: Yes (Hospitalization)
  Sender: FDA-Public Use
  Company Number: US-ELI_LILLY_AND_COMPANY-US202011008960

PATIENT
  Age: 54 Year
  Sex: Male

DRUGS (5)
  1. BASAGLAR [Interacting]
     Active Substance: INSULIN GLARGINE
     Indication: DIABETES MELLITUS
     Dosage: 50 U, DAILY
     Route: 058
  2. BASAGLAR [Interacting]
     Active Substance: INSULIN GLARGINE
     Dosage: 10 U, DAILY CURRENTLY (TITRATED UPTO 50 UNITS)
     Route: 058
  3. BASAGLAR [Interacting]
     Active Substance: INSULIN GLARGINE
     Dosage: 10 U, DAILY CURRENTLY (TITRATED UPTO 50 UNITS)
     Route: 058
  4. BASAGLAR [Suspect]
     Active Substance: INSULIN GLARGINE
     Indication: DIABETES MELLITUS
     Dosage: 50 U, DAILY
     Route: 058
  5. SYNJARDY [Interacting]
     Active Substance: EMPAGLIFLOZIN\METFORMIN HYDROCHLORIDE
     Indication: DIABETES MELLITUS
     Dosage: UNK UNK, UNKNOWN
     Route: 065

REACTIONS (2)
  - Drug interaction [Unknown]
  - Hypoglycaemia [Recovered/Resolved]

NARRATIVE: CASE EVENT DATE: 202010
